FAERS Safety Report 26051996 (Version 1)
Quarter: 2025Q4

REPORT INFORMATION
  Report Type: Spontaneous
  Country: US (occurrence: US)
  Receive Date: 20251117
  Receipt Date: 20251117
  Transmission Date: 20260117
  Serious: No
  Sender: ALVOGEN
  Company Number: US-ALVOGEN-2025098176

PATIENT
  Sex: Female

DRUGS (5)
  1. TERIPARATIDE [Suspect]
     Active Substance: TERIPARATIDE
     Indication: Osteoporosis
     Dosage: EXPIRATION DATE: JUL-2027;?DAILY DOSING.?GTIN: 00347781652890
     Dates: start: 20241115
  2. TERIPARATIDE [Suspect]
     Active Substance: TERIPARATIDE
     Indication: Osteoporosis
     Dates: start: 20250411
  3. ATORVASTATIN [Concomitant]
     Active Substance: ATORVASTATIN
     Indication: Blood cholesterol increased
  4. CARVEDILOL [Concomitant]
     Active Substance: CARVEDILOL
     Indication: Mitral valve prolapse
     Dosage: TWICE A DAY
  5. FLECAINIDE [Concomitant]
     Active Substance: FLECAINIDE
     Indication: Mitral valve prolapse
     Dosage: OTHER MANUFACTURER

REACTIONS (3)
  - Nausea [Recovered/Resolved]
  - Blood calcium increased [Recovered/Resolved]
  - Off label use [Unknown]

NARRATIVE: CASE EVENT DATE: 20250101
